FAERS Safety Report 6145891-1 (Version None)
Quarter: 2009Q2

REPORT INFORMATION
  Report Type: 
  Country: None (occurrence: None)
  Receive Date: 20090407
  Receipt Date: 20090327
  Transmission Date: 20091009
  Serious: Yes (Congenital Anomaly, Other)
  Sender: FDA-Public Use
  Company Number: BR-ROCHE-624513

PATIENT

DRUGS (2)
  1. CEFTRIAXONE SODIUM [Suspect]
     Dosage: INITIAL DOSE OF 75 MG/KG BODY WEIGHT
     Route: 042
  2. CEFTRIAXONE SODIUM [Suspect]
     Route: 042

REACTIONS (7)
  - CNS VENTRICULITIS [None]
  - CONVULSION [None]
  - ELECTROCARDIOGRAM ABNORMAL [None]
  - HYDROCEPHALUS [None]
  - MICROCEPHALY [None]
  - PSYCHOMOTOR SKILLS IMPAIRED [None]
  - SUBDURAL EFFUSION [None]
